FAERS Safety Report 4277606-6 (Version None)
Quarter: 2004Q1

REPORT INFORMATION
  Report Type: 
  Country: None (occurrence: None)
  Receive Date: 20040121
  Receipt Date: 20040107
  Transmission Date: 20041129
  Serious: Yes (Other)
  Sender: FDA-Public Use
  Company Number: US-SHR-03-017457

PATIENT
  Age: 20 Year
  Sex: Female
  Weight: 54.4 kg

DRUGS (1)
  1. YASMIN [Suspect]
     Indication: ORAL CONTRACEPTION
     Dosage: 1 TAB, 1X/DAY, ORAL
     Route: 048
     Dates: start: 20030824, end: 20031031

REACTIONS (6)
  - ABDOMINAL PAIN [None]
  - DEAFNESS [None]
  - DIZZINESS [None]
  - MUSCLE CRAMP [None]
  - NAUSEA [None]
  - RASH [None]
